FAERS Safety Report 7634646-4 (Version None)
Quarter: 2011Q3

REPORT INFORMATION
  Report Type: 
  Country: None (occurrence: None)
  Receive Date: 20110725
  Receipt Date: 20110718
  Transmission Date: 20111222
  Serious: Yes (Other)
  Sender: FDA-Public Use
  Company Number: US-RB-008686-10

PATIENT
  Sex: Female

DRUGS (2)
  1. ADDERALL 10 [Concomitant]
     Indication: ATTENTION DEFICIT/HYPERACTIVITY DISORDER
     Dosage: BEGAN PRIOR TO 3/13/2010
     Route: 065
  2. SUBOXONE [Suspect]
     Indication: DRUG DEPENDENCE
     Route: 060

REACTIONS (4)
  - MATERNAL EXPOSURE DURING PREGNANCY [None]
  - CARDIOMYOPATHY [None]
  - CARDIAC FAILURE CONGESTIVE [None]
  - NAUSEA [None]
